FAERS Safety Report 19196590 (Version 1)
Quarter: 2021Q2

REPORT INFORMATION
  Report Type: Other
  Country: ES (occurrence: ES)
  Receive Date: 20210429
  Receipt Date: 20210429
  Transmission Date: 20210717
  Serious: Yes (Life-Threatening, Hospitalization, Other)
  Sender: FDA-Public Use
  Company Number: ES-NOVA LABORATORIES LIMITED-2110028

PATIENT
  Age: 24 Month
  Sex: Female

DRUGS (2)
  1. METHOTREXATE. [Suspect]
     Active Substance: METHOTREXATE
  2. PURIXAN [Suspect]
     Active Substance: MERCAPTOPURINE
     Indication: B-CELL PROLYMPHOCYTIC LEUKAEMIA

REACTIONS (7)
  - Aplasia [Unknown]
  - Pseudomonal sepsis [Unknown]
  - Mucocutaneous candidiasis [Unknown]
  - Febrile neutropenia [Unknown]
  - Respiratory tract infection [Unknown]
  - Staphylococcal sepsis [Unknown]
  - Device related infection [Unknown]
